FAERS Safety Report 10559558 (Version 1)
Quarter: 2014Q4

REPORT INFORMATION
  Report Type: Spontaneous
  Country: US (occurrence: None)
  Receive Date: 20141031
  Receipt Date: 20141031
  Transmission Date: 20150529
  Serious: Yes (Hospitalization)
  Sender: FDA-Public Use
  Company Number: None

PATIENT
  Age: 59 Year
  Sex: Female

DRUGS (19)
  1. HYDRALAZINE [Concomitant]
     Active Substance: HYDRALAZINE HYDROCHLORIDE
  2. LACTULOSE. [Concomitant]
     Active Substance: LACTULOSE
  3. POMALYST [Suspect]
     Active Substance: POMALIDOMIDE
     Indication: PLASMA CELL MYELOMA
     Dosage: 2MG?DAILY X21D/28D?ORALLY
     Route: 048
     Dates: start: 20140729, end: 201409
  4. POMALYST [Suspect]
     Active Substance: POMALIDOMIDE
     Indication: PLASMA CELL MYELOMA
     Route: 048
     Dates: start: 20140612, end: 20140726
  5. OMEPRAZOLE. [Concomitant]
     Active Substance: OMEPRAZOLE
  6. CEFTRIAXONE. [Concomitant]
     Active Substance: CEFTRIAXONE
  7. DOCUSATE [Concomitant]
     Active Substance: DOCUSATE
  8. FENTANYL. [Concomitant]
     Active Substance: FENTANYL
  9. D5-NACL [Concomitant]
  10. HYDROMORPHONE [Concomitant]
     Active Substance: HYDROMORPHONE
  11. LORAZEPAM. [Concomitant]
     Active Substance: LORAZEPAM
  12. BISACODYL. [Concomitant]
     Active Substance: BISACODYL
  13. ACYCLOVIR. [Concomitant]
     Active Substance: ACYCLOVIR
  14. ONDANSETRON [Concomitant]
     Active Substance: ONDANSETRON
  15. TEMAZEPAM. [Concomitant]
     Active Substance: TEMAZEPAM
  16. SENNOSIDES. [Concomitant]
     Active Substance: SENNOSIDES
  17. MORPHINE [Concomitant]
     Active Substance: MORPHINE
  18. MIDAZOLAM [Concomitant]
     Active Substance: MIDAZOLAM\MIDAZOLAM HYDROCHLORIDE
  19. ACETAMINOPHEN. [Concomitant]
     Active Substance: ACETAMINOPHEN

REACTIONS (9)
  - Oedema peripheral [None]
  - Mass [None]
  - Nausea [None]
  - Computerised tomogram abnormal [None]
  - Deep vein thrombosis [None]
  - Confusional state [None]
  - Mental status changes [None]
  - Acute kidney injury [None]
  - Vomiting [None]

NARRATIVE: CASE EVENT DATE: 20141003
